APPROVED DRUG PRODUCT: POVAN
Active Ingredient: PYRVINIUM PAMOATE
Strength: EQ 50MG BASE/5ML
Dosage Form/Route: SUSPENSION;ORAL
Application: N011964 | Product #001
Applicant: PARKE DAVIS DIV WARNER LAMBERT CO
Approved: Approved Prior to Jan 1, 1982 | RLD: No | RS: No | Type: DISCN